FAERS Safety Report 8895153 (Version 1)
Quarter: 2012Q4

REPORT INFORMATION
  Report Type: 
  Country: US (occurrence: US)
  Receive Date: 20121107
  Receipt Date: 20121107
  Transmission Date: 20130627
  Serious: No
  Sender: FDA-Public Use
  Company Number: US-AMGEN-USASP2011056702

PATIENT
  Age: 62 Year
  Sex: Female

DRUGS (1)
  1. ENBREL [Suspect]
     Indication: RHEUMATOID ARTHRITIS
     Dates: start: 20100831, end: 20110905

REACTIONS (3)
  - Therapeutic response decreased [Not Recovered/Not Resolved]
  - Oedema peripheral [Recovered/Resolved]
  - Pain [Not Recovered/Not Resolved]
